FAERS Safety Report 10181286 (Version 2)
Quarter: 2014Q2

REPORT INFORMATION
  Report Type: Spontaneous
  Country: US (occurrence: US)
  Receive Date: 20140519
  Receipt Date: 20140519
  Transmission Date: 20141212
  Serious: No
  Sender: FDA-Public Use
  Company Number: US-AMGEN INC.-USASP2014027365

PATIENT
  Age: 80 Year
  Sex: Female

DRUGS (5)
  1. PROLIA [Suspect]
     Indication: OSTEOPOROSIS POSTMENOPAUSAL
     Dosage: 60 MG, Q6MO
     Route: 058
     Dates: start: 20140409
  2. LEVOTHYROXINE [Concomitant]
     Dosage: 75 MG, QD
     Route: 048
  3. LOSARTAN [Concomitant]
     Dosage: 25 MG, QD
     Route: 048
  4. AMLODIPINE [Concomitant]
     Dosage: 5 MG, QD
     Route: 048
  5. LOVASTATIN [Concomitant]
     Dosage: 20 MG, QD
     Route: 048

REACTIONS (9)
  - Pruritus [Recovering/Resolving]
  - Swelling [Recovering/Resolving]
  - Local swelling [Recovering/Resolving]
  - Joint swelling [Unknown]
  - Eye swelling [Unknown]
  - Rash [Recovered/Resolved]
  - Urticaria [Recovering/Resolving]
  - Face oedema [Recovering/Resolving]
  - Swelling face [Recovering/Resolving]
